FAERS Safety Report 7652772-0 (Version None)
Quarter: 2011Q3

REPORT INFORMATION
  Report Type: 
  Country: None (occurrence: None)
  Receive Date: 20110803
  Receipt Date: 20110725
  Transmission Date: 20111222
  Serious: Yes (Hospitalization, Other)
  Sender: FDA-Public Use
  Company Number: US-BAYER-201039289NA

PATIENT
  Age: 32 Year
  Sex: Female
  Weight: 70.295 kg

DRUGS (5)
  1. VICODIN [Concomitant]
     Dosage: UNK UNK, PRN
  2. YASMIN [Suspect]
     Indication: ACNE
     Route: 048
     Dates: start: 20050711, end: 20070806
  3. YAZ [Suspect]
     Indication: ACNE
     Route: 048
     Dates: start: 20070806, end: 20091229
  4. YAZ [Suspect]
     Indication: ORAL CONTRACEPTION
  5. YASMIN [Suspect]
     Indication: ORAL CONTRACEPTION

REACTIONS (5)
  - CHOLECYSTITIS CHRONIC [None]
  - ABDOMINAL PAIN [None]
  - CHOLELITHIASIS [None]
  - LYMPHADENOPATHY [None]
  - CHOLECYSTECTOMY [None]
